FAERS Safety Report 19178218 (Version 1)
Quarter: 2021Q2

REPORT INFORMATION
  Report Type: Spontaneous
  Country: US (occurrence: US)
  Receive Date: 20210423
  Receipt Date: 20210423
  Transmission Date: 20210717
  Serious: Yes (Death)
  Sender: FDA-Public Use
  Company Number: None

PATIENT
  Age: 61 Year
  Sex: Male

DRUGS (1)
  1. ZARXIO [Suspect]
     Active Substance: FILGRASTIM-SNDZ
     Indication: ADULT T-CELL LYMPHOMA/LEUKAEMIA
     Dosage: ?          OTHER STRENGTH:480MCG/0.8ML;?
     Route: 058
     Dates: start: 20201005, end: 20210127

REACTIONS (1)
  - Death [None]

NARRATIVE: CASE EVENT DATE: 20210423
